FAERS Safety Report 8513796-4 (Version None)
Quarter: 2012Q3

REPORT INFORMATION
  Report Type: 
  Country: None (occurrence: None)
  Receive Date: 20120717
  Receipt Date: 20120711
  Transmission Date: 20120928
  Serious: No
  Sender: FDA-Public Use
  Company Number: US-BAYER-2012-069386

PATIENT
  Age: 47 Year
  Sex: Female

DRUGS (2)
  1. GADAVIST [Suspect]
     Indication: MULTIPLE SCLEROSIS
  2. GADAVIST [Suspect]
     Indication: NUCLEAR MAGNETIC RESONANCE IMAGING BRAIN
     Dosage: 10 ML, ONCE
     Dates: start: 20120711, end: 20120711

REACTIONS (3)
  - RETCHING [None]
  - HYPOAESTHESIA ORAL [None]
  - FLUSHING [None]
